FAERS Safety Report 5248021-3 (Version None)
Quarter: 2007Q1

REPORT INFORMATION
  Report Type: 
  Country: None (occurrence: None)
  Receive Date: 20070222
  Receipt Date: 20070215
  Transmission Date: 20070707
  Serious: Yes (Other)
  Sender: FDA-Public Use
  Company Number: TCI2007A00774

PATIENT
  Age: 65 Year
  Sex: Female

DRUGS (3)
  1. ACTOS [Suspect]
     Indication: DIABETES MELLITUS
     Dosage: 15 MG (15 MG, 1 D) PER ORAL
     Route: 048
     Dates: start: 20060201, end: 20070207
  2. VOGLIBOSE [Suspect]
     Indication: DIABETES MELLITUS
     Dosage: UNK. PER ORAL
     Route: 048
     Dates: start: 20060201
  3. NATEGLINIDE [Suspect]
     Indication: DIABETES MELLITUS
     Dosage: PER ORAL
     Route: 048
     Dates: start: 20060201

REACTIONS (1)
  - THROMBOCYTOPENIA [None]
